FAERS Safety Report 15065321 (Version 1)
Quarter: 2018Q2

REPORT INFORMATION
  Report Type: Report from Study
  Country: BR (occurrence: BR)
  Receive Date: 20180626
  Receipt Date: 20180626
  Transmission Date: 20180711
  Serious: Yes (Hospitalization)
  Sender: FDA-Public Use
  Company Number: BR-ROCHE-2123761

PATIENT
  Age: 46 Year
  Sex: Female
  Weight: 90.35 kg

DRUGS (24)
  1. OCRELIZUMAB. [Suspect]
     Active Substance: OCRELIZUMAB
     Dosage: OLE-WEEK 24
     Route: 042
     Dates: start: 20150430, end: 20150430
  2. PARACETAMOL [Concomitant]
     Active Substance: ACETAMINOPHEN
     Indication: PAIN
     Dosage: SUBSEQUENTLY RECEIVED ON 13/NOV/2014, 25/NOV/2014, 30/APR/2015, 20/OCT/2015, 05/APR/2016, 23/SEP/201
     Route: 065
     Dates: start: 20140522
  3. PLACEBO [Suspect]
     Active Substance: UNSPECIFIED INGREDIENT
     Indication: RELAPSING-REMITTING MULTIPLE SCLEROSIS
     Route: 058
     Dates: start: 20121220, end: 20121220
  4. OCRELIZUMAB. [Suspect]
     Active Substance: OCRELIZUMAB
     Dosage: OLE-WEEK 72
     Route: 042
     Dates: start: 20160405, end: 20160405
  5. OCRELIZUMAB. [Suspect]
     Active Substance: OCRELIZUMAB
     Dosage: OLE-WEEK 144
     Route: 042
     Dates: start: 20170822, end: 20170822
  6. OCRELIZUMAB. [Suspect]
     Active Substance: OCRELIZUMAB
     Indication: RELAPSING-REMITTING MULTIPLE SCLEROSIS
     Dosage: WEEK 1?ADMINISTERED ON DAY 1 OF CYCLE 1, FOLLOWED BY SINGLE INFUSION FOR THREE SUBSEQUENT 24-WEEK CY
     Route: 042
     Dates: start: 20121220, end: 20121220
  7. OCRELIZUMAB. [Suspect]
     Active Substance: OCRELIZUMAB
     Dosage: WEEK 24
     Route: 042
     Dates: start: 20130613, end: 20130613
  8. PLACEBO [Suspect]
     Active Substance: UNSPECIFIED INGREDIENT
     Route: 058
     Dates: start: 20141024, end: 20141110
  9. OCRELIZUMAB. [Suspect]
     Active Substance: OCRELIZUMAB
     Indication: RELAPSING-REMITTING MULTIPLE SCLEROSIS
     Dosage: OLE-WEEK 0?ADMINISTERED AS 300 MG (260 ML) ON DAY 1 OF CYCLE 5, FOLLOWED BY 600 MG SINGLE INFUSION F
     Route: 042
     Dates: start: 20141113, end: 20141113
  10. OCRELIZUMAB. [Suspect]
     Active Substance: OCRELIZUMAB
     Dosage: OLE-WEEK 96
     Route: 042
     Dates: start: 20160923, end: 20160923
  11. OCRELIZUMAB. [Suspect]
     Active Substance: OCRELIZUMAB
     Dosage: OLE-WEEK 168
     Route: 042
     Dates: start: 20180206, end: 20180206
  12. PARACETAMOL [Concomitant]
     Active Substance: ACETAMINOPHEN
     Route: 065
     Dates: start: 20140717, end: 20140820
  13. DRAMAMINE [Concomitant]
     Active Substance: DIMENHYDRINATE
     Route: 065
     Dates: start: 20130206
  14. GLUCOSAMINE CHONDROITIN COMPLEX [Concomitant]
     Active Substance: CHONDROITIN SULFATE (BOVINE)\GLUCOSAMINE HYDROCHLORIDE
     Dosage: GLUCOSAMINE 1,5G + CONDROITINE 1,2G?1 UNIT
     Route: 065
     Dates: start: 20160622
  15. OCRELIZUMAB. [Suspect]
     Active Substance: OCRELIZUMAB
     Dosage: WEEK 2?ADMINISTERED ON DAY 15 OF CYCLE 1, FOLLOWED BY SINGLE INFUSION FOR THREE SUBSEQUENT 24-WEEK C
     Route: 042
     Dates: start: 20130124, end: 20130124
  16. OCRELIZUMAB. [Suspect]
     Active Substance: OCRELIZUMAB
     Dosage: WEEK 48
     Route: 042
     Dates: start: 20131119, end: 20131119
  17. OCRELIZUMAB. [Suspect]
     Active Substance: OCRELIZUMAB
     Dosage: OLE-WEEK 120
     Route: 042
     Dates: start: 20170307, end: 20170307
  18. METHYLPREDNISOLONE. [Concomitant]
     Active Substance: METHYLPREDNISOLONE
     Dosage: SUBSEQUENTLY RECEIVED ON 24/JAN/2013, 13/JUN/2013, 19/NOV/2013, 22/MAY/2014, 13/NOV/2014, 25/NOV/201
     Route: 065
     Dates: start: 20121220, end: 20121220
  19. SYNTHROID [Concomitant]
     Active Substance: LEVOTHYROXINE SODIUM
     Indication: HYPOTHYROIDISM
     Route: 065
  20. HIGROTON [Concomitant]
     Active Substance: CHLORTHALIDONE
     Indication: HYPERTENSION
     Route: 065
     Dates: start: 20170110
  21. OCRELIZUMAB. [Suspect]
     Active Substance: OCRELIZUMAB
     Dosage: WEEK 72
     Route: 042
     Dates: start: 20140522, end: 20140522
  22. PROMETAZINA [Concomitant]
     Indication: HYPERSENSITIVITY
     Dosage: SUBSEQUENTLY RECEIVED ON 24/JAN/2013, 13/JUN/2013, 19/NOV/2013, 22/MAY/2014, 13/NOV/2014, 25/NOV/201
     Route: 065
     Dates: start: 20121220, end: 20121220
  23. OCRELIZUMAB. [Suspect]
     Active Substance: OCRELIZUMAB
     Dosage: OLE-WEEK 2?ADMINISTERED AS 300 MG ON DAY 15 OF CYCLE 5, FOLLOWED BY 600 MG SINGLE INFUSION FOR EACH
     Route: 042
     Dates: start: 20141125, end: 20141125
  24. OCRELIZUMAB. [Suspect]
     Active Substance: OCRELIZUMAB
     Dosage: OLE-WEEK 48
     Route: 042
     Dates: start: 20151020, end: 20151020

REACTIONS (1)
  - Pyrexia [Recovered/Resolved]

NARRATIVE: CASE EVENT DATE: 20180504
